FAERS Safety Report 14312151 (Version 1)
Quarter: 2017Q4

REPORT INFORMATION
  Report Type: Spontaneous
  Country: IL (occurrence: IL)
  Receive Date: 20171221
  Receipt Date: 20171221
  Transmission Date: 20180321
  Serious: Yes (Other)
  Sender: FDA-Public Use
  Company Number: IL-009507513-1712ISR007689

PATIENT
  Age: 63 Year
  Sex: Male

DRUGS (1)
  1. GRAZOPREVIR (+) ELBASVIR [Suspect]
     Active Substance: ELBASVIR\GRAZOPREVIR
     Indication: CHRONIC HEPATITIS C
     Dosage: UNK
     Route: 048

REACTIONS (1)
  - Hepatitis C [Unknown]
